FAERS Safety Report 9009444 (Version 1)
Quarter: 2013Q1

REPORT INFORMATION
  Report Type: Spontaneous
  Country: US (occurrence: US)
  Receive Date: 20130112
  Receipt Date: 20130112
  Transmission Date: 20140127
  Serious: Yes (Hospitalization)
  Sender: FDA-Public Use
  Company Number: US-009507513-1301USA001770

PATIENT
  Age: 81 Year
  Sex: Female

DRUGS (4)
  1. SINGULAIR [Suspect]
     Dosage: 10 MG Q DAY
     Route: 048
  2. FURADANTIN [Suspect]
     Dosage: 2 DF Q DAY
     Route: 048
  3. DEROXAT [Suspect]
     Dosage: 10 MG Q DAY
     Route: 048
  4. TEMESTA [Suspect]
     Dosage: 1 MG Q DAY
     Route: 048

REACTIONS (2)
  - Interstitial lung disease [Unknown]
  - Hypoxia [Unknown]
